FAERS Safety Report 7197025-2 (Version None)
Quarter: 2010Q4

REPORT INFORMATION
  Report Type: 
  Country: None (occurrence: None)
  Receive Date: 20101224
  Receipt Date: 20101213
  Transmission Date: 20110411
  Serious: Yes (Other)
  Sender: FDA-Public Use
  Company Number: PHHY2010CA83379

PATIENT
  Sex: Female

DRUGS (9)
  1. ACLASTA [Suspect]
     Indication: OSTEOPOROSIS
     Dosage: 5 MG
     Dates: start: 20100217
  2. POLYGAM S/D [Concomitant]
     Route: 042
  3. LYRICA [Concomitant]
  4. DIOVAN [Concomitant]
  5. PROVERA [Concomitant]
  6. PANTOLOC [Concomitant]
  7. STATEX [Concomitant]
  8. PREMARIN [Concomitant]
  9. DURAGESIC-50 [Concomitant]

REACTIONS (3)
  - BREAST CANCER [None]
  - BREAST CANCER FEMALE [None]
  - MASTECTOMY [None]
